FAERS Safety Report 13788833 (Version 1)
Quarter: 2017Q3

REPORT INFORMATION
  Report Type: Spontaneous
  Country: US (occurrence: US)
  Receive Date: 20170725
  Receipt Date: 20170725
  Transmission Date: 20171127
  Serious: No
  Sender: FDA-Public Use
  Company Number: US-UNITED THERAPEUTICS-UNT-2016-019659

PATIENT
  Age: 71 Year
  Sex: Female
  Weight: 74.83 kg

DRUGS (2)
  1. ELIQUIS [Concomitant]
     Active Substance: APIXABAN
     Indication: PRODUCT USED FOR UNKNOWN INDICATION
  2. TYVASO [Suspect]
     Active Substance: TREPROSTINIL
     Indication: PULMONARY HYPERTENSION
     Dosage: 18 - 54 MICROGRAMS, QID
     Dates: start: 20161219

REACTIONS (5)
  - Malaise [Unknown]
  - Retching [Unknown]
  - Dyspnoea exertional [Unknown]
  - Nausea [Unknown]
  - Cough [Unknown]

NARRATIVE: CASE EVENT DATE: 201612
